FAERS Safety Report 4996269-5 (Version None)
Quarter: 2006Q2

REPORT INFORMATION
  Report Type: 
  Country: None (occurrence: None)
  Receive Date: 20060505
  Receipt Date: 20060425
  Transmission Date: 20061013
  Serious: Yes (Death, Hospitalization)
  Sender: FDA-Public Use
  Company Number: 028-C5013-06030327

PATIENT
  Age: 66 Year
  Sex: Female
  Weight: 43 kg

DRUGS (2)
  1. REVLIMID [Suspect]
     Indication: MULTIPLE MYELOMA
     Dosage: 25 MG, QD FOR 21D, ORAL
     Route: 048
     Dates: start: 20051229, end: 20060310
  2. DEXAMETHASONE [Suspect]
     Indication: MULTIPLE MYELOMA
     Dosage: 40 MG, QD ON DAYS 1-4, 9-12, 17-20, ORAL
     Route: 048
     Dates: start: 20051229, end: 20060310

REACTIONS (16)
  - BLOOD SODIUM DECREASED [None]
  - BONE PAIN [None]
  - CARDIAC FAILURE CONGESTIVE [None]
  - CHRONIC OBSTRUCTIVE PULMONARY DISEASE [None]
  - DRUG TOXICITY [None]
  - FEBRILE NEUTROPENIA [None]
  - HAEMATOCRIT DECREASED [None]
  - HAEMOGLOBIN DECREASED [None]
  - HYPOKALAEMIA [None]
  - KYPHOSIS [None]
  - NAUSEA [None]
  - PAIN [None]
  - PNEUMONIA [None]
  - RESPIRATORY DEPRESSION [None]
  - RESPIRATORY TRACT INFECTION [None]
  - RIB FRACTURE [None]
